FAERS Safety Report 5101494-9 (Version None)
Quarter: 2006Q3

REPORT INFORMATION
  Report Type: 
  Country: None (occurrence: None)
  Receive Date: 20060911
  Receipt Date: 20060802
  Transmission Date: 20061208
  Serious: Yes (Death, Life-Threatening, Hospitalization)
  Sender: FDA-Public Use
  Company Number: 2006AP03600

PATIENT
  Age: 1061 Month
  Sex: Female
  Weight: 47.5 kg

DRUGS (4)
  1. CRESTOR [Suspect]
     Indication: HYPERLIPIDAEMIA
     Route: 048
     Dates: start: 20060707, end: 20060801
  2. SLO-BID [Concomitant]
     Indication: BRONCHITIS CHRONIC
     Route: 048
     Dates: start: 19961030, end: 20060802
  3. ODRIC [Concomitant]
     Indication: HYPERTENSION
     Route: 048
     Dates: start: 19980304, end: 20060802
  4. FERROMIA [Concomitant]
     Indication: ANAEMIA
     Route: 048
     Dates: start: 20051107, end: 20060802

REACTIONS (8)
  - BLOOD CULTURE POSITIVE [None]
  - DISSEMINATED INTRAVASCULAR COAGULATION [None]
  - KLEBSIELLA INFECTION [None]
  - MULTI-ORGAN FAILURE [None]
  - OLIGURIA [None]
  - RHABDOMYOLYSIS [None]
  - SEPTIC SHOCK [None]
  - URINARY TRACT INFECTION [None]
